FAERS Safety Report 21313733 (Version 1)
Quarter: 2022Q3

REPORT INFORMATION
  Report Type: Other
  Country: US (occurrence: US)
  Receive Date: 20220909
  Receipt Date: 20220909
  Transmission Date: 20221026
  Serious: No
  Sender: FDA-Public Use
  Company Number: US-LEADIANT BIOSCIENCES INC-2021STPI000335

PATIENT
  Sex: Female

DRUGS (1)
  1. MATULANE [Suspect]
     Active Substance: PROCARBAZINE HYDROCHLORIDE
     Indication: Non-Hodgkin^s lymphoma
     Dosage: 50 MILLIGRAM,TAKE 4 CAPSULES (200 MG TOTAL), DAILY ON DAYS 1-7 EVERY 14 DAYS
     Route: 048
     Dates: start: 20211001

REACTIONS (3)
  - Constipation [Unknown]
  - Diarrhoea [Unknown]
  - Nausea [Unknown]
